FAERS Safety Report 14005359 (Version 4)
Quarter: 2017Q4

REPORT INFORMATION
  Report Type: Spontaneous
  Country: JP (occurrence: JP)
  Receive Date: 20170922
  Receipt Date: 20171121
  Transmission Date: 20180321
  Serious: Yes (Hospitalization)
  Sender: FDA-Public Use
  Company Number: JP-PFIZER INC-2017410862

PATIENT
  Age: 56 Year
  Sex: Female

DRUGS (14)
  1. SOLANTAL [Suspect]
     Active Substance: TIARAMIDE
     Indication: OROPHARYNGEAL PAIN
  2. MUCODYNE [Suspect]
     Active Substance: CARBOCYSTEINE
     Indication: PYREXIA
     Dosage: 500 MG, 3X/DAY
     Route: 048
     Dates: start: 20160430, end: 20160504
  3. MUCODYNE [Suspect]
     Active Substance: CARBOCYSTEINE
     Indication: COUGH
  4. CALONAL [Suspect]
     Active Substance: ACETAMINOPHEN
     Indication: PHARYNGITIS
     Dosage: UNK (TOTAL THREE TIMES)
     Route: 048
  5. CALONAL [Suspect]
     Active Substance: ACETAMINOPHEN
     Indication: OROPHARYNGEAL PAIN
  6. BANAN [Suspect]
     Active Substance: CEFPODOXIME PROXETIL
     Indication: OROPHARYNGEAL PAIN
  7. BANAN [Suspect]
     Active Substance: CEFPODOXIME PROXETIL
     Indication: PYREXIA
  8. CLARITHROMYCIN. [Concomitant]
     Active Substance: CLARITHROMYCIN
     Dosage: UNK
     Dates: start: 20160430, end: 20160504
  9. SOLANTAL [Suspect]
     Active Substance: TIARAMIDE
     Indication: PHARYNGITIS
     Dosage: 100 MG, TID
     Route: 048
     Dates: start: 20160425, end: 20160429
  10. MUCODYNE [Suspect]
     Active Substance: CARBOCYSTEINE
     Indication: OROPHARYNGEAL PAIN
  11. BANAN [Suspect]
     Active Substance: CEFPODOXIME PROXETIL
     Indication: PHARYNGITIS
     Dosage: 100 MG, BID
     Route: 048
     Dates: start: 20160425, end: 20160429
  12. CALONAL [Suspect]
     Active Substance: ACETAMINOPHEN
     Indication: PYREXIA
  13. SOLANTAL [Suspect]
     Active Substance: TIARAMIDE
     Indication: PYREXIA
  14. MUCODYNE [Suspect]
     Active Substance: CARBOCYSTEINE
     Indication: PHARYNGITIS
     Dosage: 500 MG, 3X/DAY
     Route: 048
     Dates: start: 20160425, end: 20160429

REACTIONS (1)
  - Drug eruption [Recovered/Resolved]

NARRATIVE: CASE EVENT DATE: 20160504
